FAERS Safety Report 18458764 (Version 1)
Quarter: 2020Q4

REPORT INFORMATION
  Report Type: Not Available
  Country: None (occurrence: None)
  Receive Date: 20201103
  Receipt Date: 20201103
  Transmission Date: 20210114
  Serious: Yes (Other)
  Sender: FDA-Public Use
  Company Number: US-AKORN-155195

PATIENT
  Age: 66 Year
  Sex: Male

DRUGS (1)
  1. GABAPENTIN ORAL SOLUTION [Suspect]
     Active Substance: GABAPENTIN

REACTIONS (14)
  - Feeling jittery [Unknown]
  - Feeling abnormal [None]
  - Asthenia [None]
  - Feeding disorder [Unknown]
  - Nausea [Unknown]
  - Headache [Unknown]
  - Peripheral swelling [Unknown]
  - Gait disturbance [Unknown]
  - Balance disorder [Unknown]
  - Mobility decreased [None]
  - Musculoskeletal stiffness [Unknown]
  - Cough [Unknown]
  - Insomnia [Unknown]
  - Hot flush [Unknown]

NARRATIVE: CASE EVENT DATE: 20181001
